FAERS Safety Report 20888916 (Version 2)
Quarter: 2022Q2

REPORT INFORMATION
  Report Type: Other
  Country: US (occurrence: None)
  Receive Date: 20220529
  Receipt Date: 20220531
  Transmission Date: 20220721
  Serious: No
  Sender: FDA-Public Use
  Company Number: US-ROCHE-3104814

PATIENT
  Sex: Female

DRUGS (1)
  1. OCREVUS [Suspect]
     Active Substance: OCRELIZUMAB
     Indication: Multiple sclerosis
     Dosage: DOT: 15/DEC/2021, 08/JUN/2021, 02/MAY/2020, 03/DEC/2020
     Route: 042
     Dates: start: 20200502

REACTIONS (1)
  - COVID-19 [Not Recovered/Not Resolved]
